FAERS Safety Report 13012526 (Version 1)
Quarter: 2016Q4

REPORT INFORMATION
  Report Type: Spontaneous
  Country: BR (occurrence: BR)
  Receive Date: 20161209
  Receipt Date: 20161209
  Transmission Date: 20170207
  Serious: Yes (Hospitalization, Other)
  Sender: FDA-Public Use
  Company Number: BR-009507513-1612BRA003834

PATIENT
  Age: 34 Year
  Sex: Female
  Weight: 60 kg

DRUGS (2)
  1. MERCILON [Suspect]
     Active Substance: DESOGESTREL\ETHINYL ESTRADIOL
     Dosage: UNK
     Route: 048
     Dates: start: 201604
  2. MERCILON [Suspect]
     Active Substance: DESOGESTREL\ETHINYL ESTRADIOL
     Indication: CONTRACEPTION
     Dosage: 1 TABLET, QD
     Route: 048
     Dates: end: 2014

REACTIONS (3)
  - Caesarean section [Recovered/Resolved]
  - Maternal exposure before pregnancy [Recovered/Resolved]
  - Weight decreased [Not Recovered/Not Resolved]

NARRATIVE: CASE EVENT DATE: 2015
